FAERS Safety Report 7589349-1 (Version None)
Quarter: 2011Q3

REPORT INFORMATION
  Report Type: 
  Country: None (occurrence: None)
  Receive Date: 20110705
  Receipt Date: 20110630
  Transmission Date: 20111222
  Serious: Yes (Other)
  Sender: FDA-Public Use
  Company Number: GB-TEVA-288802ISR

PATIENT
  Age: 52 Year
  Sex: Male
  Weight: 84 kg

DRUGS (2)
  1. VENLAFAXINE [Suspect]
     Indication: ANXIETY
     Route: 002
     Dates: start: 20110501
  2. VENLAFAXINE [Suspect]
     Indication: DEPRESSION

REACTIONS (2)
  - PRIAPISM [None]
  - PAIN [None]
